FAERS Safety Report 16918134 (Version 1)
Quarter: 2019Q4

REPORT INFORMATION
  Report Type: Spontaneous
  Country: GB (occurrence: GB)
  Receive Date: 20191015
  Receipt Date: 20191015
  Transmission Date: 20200122
  Serious: Yes (Other)
  Sender: FDA-Public Use
  Company Number: GB-TEVA-2019-GB-1120761

PATIENT
  Age: 56 Year
  Sex: Male
  Weight: 128 kg

DRUGS (17)
  1. CIPROFLOXACIN. [Suspect]
     Active Substance: CIPROFLOXACIN
     Dates: start: 20190801, end: 20190808
  2. ADIZEM [Concomitant]
     Active Substance: DILTIAZEM HYDROCHLORIDE
     Dosage: 1 DF/ DAY
     Dates: start: 20180927
  3. COCODAMOL [Concomitant]
     Active Substance: ACETAMINOPHEN\CODEINE PHOSPHATE
     Dosage: TAKE 1 OR 2 4 TIMES/DAY, 1 DF
     Dates: start: 20180824
  4. ADCAL [Concomitant]
     Dosage: 2 DF/ DAY
     Dates: start: 20180824
  5. GAVISCON ADVANCE [Concomitant]
     Active Substance: POTASSIUM BICARBONATE\SODIUM ALGINATE
     Dosage: AFTER MEALS, 30 ML/ DAY
     Dates: start: 20180824
  6. MONTELUKAST [Concomitant]
     Active Substance: MONTELUKAST SODIUM
     Dosage: AT NIGHT, 1 DF/ DAY
     Dates: start: 20180824
  7. LOSARTAN. [Concomitant]
     Active Substance: LOSARTAN
     Dosage: 1 DF/ DAY
     Dates: start: 20180824
  8. LANSOPRAZOLE. [Concomitant]
     Active Substance: LANSOPRAZOLE
     Dosage: 1 DF/ DAY
     Dates: start: 20180824
  9. SPIRIVA [Concomitant]
     Active Substance: TIOTROPIUM BROMIDE MONOHYDRATE
     Dosage: PUFFS, 2 DF/ DAY
     Dates: start: 20180824
  10. INDAPAMIDE. [Concomitant]
     Active Substance: INDAPAMIDE
     Dosage: EACH MORNING, 1 DF/ DAY
     Dates: start: 20190307
  11. RELVAR ELLIPTA [Concomitant]
     Active Substance: FLUTICASONE FUROATE\VILANTEROL TRIFENATATE
     Dosage: (ASTHMA ONLY BRITISH THORACIC SOCIETY (BTS) STEP 5), 1 DF/ DAY
     Route: 055
     Dates: start: 20180824
  12. PREDNISOLONE. [Concomitant]
     Active Substance: PREDNISOLONE
     Dosage: FOR 5 DAYS, 8 DF/ DAY
     Dates: start: 20190709, end: 20190714
  13. DOXYCYCLINE. [Concomitant]
     Active Substance: DOXYCYCLINE
     Dosage: TWO FIRST DOSE, 1 DF/ DAY/ 7 DAYS
     Dates: start: 20190725, end: 20190801
  14. CIPROFLOXACIN. [Suspect]
     Active Substance: CIPROFLOXACIN
     Indication: CHRONIC OBSTRUCTIVE PULMONARY DISEASE
     Dosage: 750MG
     Route: 065
     Dates: start: 20190909
  15. AMOXICILLIN. [Concomitant]
     Active Substance: AMOXICILLIN
     Dosage: 3 DF/ DAY
     Dates: start: 20190909
  16. AMITRIPTYLINE HYDROCHLORIDE. [Concomitant]
     Active Substance: AMITRIPTYLINE HYDROCHLORIDE
     Dosage: AT NIGHT, 1 DF/ DAY
     Dates: start: 20180824
  17. AVAMYS [Concomitant]
     Active Substance: FLUTICASONE FUROATE
     Dosage: 2 EACH NOSTRIL, 4 DF/ DAY
     Dates: start: 20180824

REACTIONS (2)
  - Dyspnoea [Unknown]
  - Wheezing [Recovering/Resolving]
